FAERS Safety Report 4990656-7 (Version None)
Quarter: 2006Q2

REPORT INFORMATION
  Report Type: 
  Country: None (occurrence: None)
  Receive Date: 20060427
  Receipt Date: 20060417
  Transmission Date: 20061013
  Serious: Yes (Other)
  Sender: FDA-Public Use
  Company Number: HQWYE849817APR06

PATIENT
  Age: 17 Year
  Sex: Female

DRUGS (6)
  1. EFFEXOR [Suspect]
     Indication: MAJOR DEPRESSION
     Dosage: 37.5 MG 1X PER 1 DAY, ORAL; SEE IMAGE
     Route: 048
     Dates: start: 20031104, end: 20031101
  2. EFFEXOR [Suspect]
     Indication: MAJOR DEPRESSION
     Dosage: 37.5 MG 1X PER 1 DAY, ORAL; SEE IMAGE
     Route: 048
     Dates: start: 20031028, end: 20031103
  3. REMICADE [Suspect]
     Indication: CROHN'S DISEASE
     Dosage: 5 MG/KG
     Dates: start: 20020713
  4. FLAGYL [Concomitant]
  5. FOLIC ACID [Concomitant]
  6. DEPO-PROVERA [Concomitant]

REACTIONS (3)
  - DRUG WITHDRAWAL SYNDROME [None]
  - FEELING DRUNK [None]
  - SUICIDAL IDEATION [None]
